FAERS Safety Report 5443088-1 (Version None)
Quarter: 2007Q3

REPORT INFORMATION
  Report Type: 
  Country: None (occurrence: None)
  Receive Date: 20070830
  Receipt Date: 20070720
  Transmission Date: 20080115
  Serious: Yes (Other)
  Sender: FDA-Public Use
  Company Number: 0008#8#2007-00225

PATIENT
  Age: 69 Year
  Sex: Male

DRUGS (3)
  1. GLYCERYL TRINITRATE (DOSE UNKNOWN), UNKNOWN (GLYCERYL TRINITRATE) [Suspect]
     Indication: PRINZMETAL ANGINA
     Dosage: SUBLINGUAL; 1.5 MG/H, INTRAVENOUS DRIP
     Route: 060
  2. HYPOTENSIVE CONDITION [10021107/10021097 V.10.0] [Suspect]
  3. DIZZINESS [10013573/10013573 V.10.0] [Suspect]

REACTIONS (3)
  - DIZZINESS [None]
  - DRUG INEFFECTIVE [None]
  - HYPOTENSION [None]
